FAERS Safety Report 8128718-8 (Version None)
Quarter: 2012Q1

REPORT INFORMATION
  Report Type: 
  Country: None (occurrence: None)
  Receive Date: 20120210
  Receipt Date: 20110202
  Transmission Date: 20120608
  Serious: No
  Sender: FDA-Public Use
  Company Number: US-BRISTOL-MYERS SQUIBB COMPANY-15525918

PATIENT
  Age: 59 Year
  Sex: Female

DRUGS (5)
  1. KLOR-CON [Concomitant]
  2. DICLOFENAC SODIUM [Concomitant]
  3. ORENCIA [Suspect]
     Dates: start: 20101130
  4. VITAMIN D [Concomitant]
  5. FORTICAL [Concomitant]

REACTIONS (3)
  - PAIN IN EXTREMITY [None]
  - INFLUENZA [None]
  - SKIN FISSURES [None]
